FAERS Safety Report 7681820-7 (Version None)
Quarter: 2011Q3

REPORT INFORMATION
  Report Type: 
  Country: None (occurrence: None)
  Receive Date: 20110813
  Receipt Date: 20110805
  Transmission Date: 20111222
  Serious: Yes (Other)
  Sender: FDA-Public Use
  Company Number: US-AMGEN-USASP2011040019

PATIENT
  Age: 48 Year
  Sex: Female

DRUGS (4)
  1. ENBREL [Suspect]
     Indication: SYSTEMIC LUPUS ERYTHEMATOSUS
  2. ARAVA [Concomitant]
     Dates: start: 20090101
  3. PLAQUENIL [Concomitant]
     Dates: start: 20090101
  4. ENBREL [Suspect]
     Indication: RHEUMATOID ARTHRITIS
     Dosage: 50 MG, QWK
     Dates: start: 20090914

REACTIONS (9)
  - JOINT RANGE OF MOTION DECREASED [None]
  - VISION BLURRED [None]
  - CONTUSION [None]
  - FATIGUE [None]
  - SYSTEMIC LUPUS ERYTHEMATOSUS [None]
  - PALLOR [None]
  - ASTHENIA [None]
  - RHEUMATOID NODULE [None]
  - DRUG INEFFECTIVE [None]
